FAERS Safety Report 13805884 (Version 1)
Quarter: 2017Q3

REPORT INFORMATION
  Report Type: Report from Study
  Country: BE (occurrence: BE)
  Receive Date: 20170728
  Receipt Date: 20170728
  Transmission Date: 20171127
  Serious: Yes (Other)
  Sender: FDA-Public Use
  Company Number: BE-SUN PHARMACEUTICAL INDUSTRIES LTD-2017RR-146118

PATIENT
  Sex: Male

DRUGS (9)
  1. ATORVASTATIN [Suspect]
     Active Substance: ATORVASTATIN
     Dosage: 20 MG, DAILY
     Route: 065
     Dates: start: 20120119
  2. ATORVASTATIN [Suspect]
     Active Substance: ATORVASTATIN
     Dosage: 160 MG, DAILY
     Route: 065
     Dates: start: 20120806
  3. EZETIMIBE. [Suspect]
     Active Substance: EZETIMIBE
     Dosage: 10 MG, DAILY
     Route: 065
     Dates: start: 20120206
  4. ATORVASTATIN [Suspect]
     Active Substance: ATORVASTATIN
     Dosage: 80 MG, DAILY
     Route: 065
     Dates: start: 20120206
  5. EZETIMIBE. [Suspect]
     Active Substance: EZETIMIBE
     Indication: TYPE IIA HYPERLIPIDAEMIA
     Dosage: 10 MG, DAILY
     Route: 065
     Dates: start: 20120119
  6. EZETIMIBE. [Suspect]
     Active Substance: EZETIMIBE
     Dosage: 10 MG, DAILY
     Route: 065
     Dates: start: 20120806
  7. ATORVASTATIN [Suspect]
     Active Substance: ATORVASTATIN
     Indication: TYPE IIA HYPERLIPIDAEMIA
     Dosage: 40 MG, DAILY
     Route: 065
     Dates: start: 1999
  8. ATORVASTATIN [Suspect]
     Active Substance: ATORVASTATIN
     Dosage: 40 MG, DAILY
     Route: 065
     Dates: start: 20120124
  9. EZETIMIBE. [Suspect]
     Active Substance: EZETIMIBE
     Dosage: 10 MG, DAILY
     Route: 065
     Dates: start: 20120124

REACTIONS (1)
  - Drug effect incomplete [Unknown]
